FAERS Safety Report 4571630-1 (Version None)
Quarter: 2005Q1

REPORT INFORMATION
  Report Type: 
  Country: None (occurrence: None)
  Receive Date: 20050207
  Receipt Date: 20050111
  Transmission Date: 20050727
  Serious: Yes (Other)
  Sender: FDA-Public Use
  Company Number: 200510103JP

PATIENT
  Age: 70 Year
  Sex: Male

DRUGS (8)
  1. KETEK [Suspect]
     Indication: BRONCHITIS ACUTE
     Route: 048
     Dates: start: 20050108, end: 20050111
  2. PL GRAN. [Concomitant]
     Dates: start: 20050108, end: 20050111
  3. SELBEX [Concomitant]
     Dates: start: 20050108, end: 20050111
  4. NIFLAN [Concomitant]
     Indication: BRONCHITIS
     Route: 048
     Dates: start: 20050105, end: 20050111
  5. HOKUNALIN [Concomitant]
     Indication: BRONCHITIS
     Dates: start: 20050105, end: 20050111
  6. SALAZAC [Concomitant]
     Indication: BRONCHITIS
     Route: 048
     Dates: start: 20050105
  7. TELGIN-G [Concomitant]
     Indication: BRONCHITIS
     Route: 048
     Dates: start: 20050101
  8. APLACE [Concomitant]
     Indication: BRONCHITIS
     Route: 048
     Dates: start: 20050105

REACTIONS (4)
  - BODY TEMPERATURE INCREASED [None]
  - CONVULSION [None]
  - FALL [None]
  - LOSS OF CONSCIOUSNESS [None]
